FAERS Safety Report 6633837-9 (Version None)
Quarter: 2010Q1

REPORT INFORMATION
  Report Type: 
  Country: None (occurrence: None)
  Receive Date: 20100315
  Receipt Date: 20100308
  Transmission Date: 20100710
  Serious: Yes (Death, Hospitalization, Other)
  Sender: FDA-Public Use
  Company Number: AU-ELI_LILLY_AND_COMPANY-AU201003002544

PATIENT
  Sex: Male
  Weight: 64 kg

DRUGS (13)
  1. GEMCITABINE HCL [Suspect]
     Indication: NON-SMALL CELL LUNG CANCER
     Dosage: 1000 MG/M2, DAYS 1 AND 8 OF A 21 DAY CYCLE
     Route: 042
     Dates: start: 20090818, end: 20091027
  2. CETUXIMAB [Suspect]
     Indication: NON-SMALL CELL LUNG CANCER
     Dosage: 250 MG, WEEKLY (1/W)
     Route: 042
     Dates: start: 20090818
  3. CETUXIMAB [Suspect]
     Dosage: 500 MG/M2, TWO WEEKLY
     Route: 042
     Dates: end: 20091201
  4. CARBOPLATIN [Suspect]
     Indication: NON-SMALL CELL LUNG CANCER
     Dosage: 450 MG, D1 OF A 21 DAY CYCLE
     Route: 042
     Dates: start: 20090818, end: 20091020
  5. ALIMTA [Concomitant]
     Indication: NON-SMALL CELL LUNG CANCER
  6. ASPIRIN [Concomitant]
     Dosage: 100 MG, UNK
  7. ATENOLOL [Concomitant]
     Dosage: 50 MG, UNK
  8. EZETIMIBE [Concomitant]
     Dosage: 10 MG, UNK
  9. FELODIPINE [Concomitant]
     Dosage: 10 MG, UNK
  10. FOLIC ACID [Concomitant]
     Dosage: 500 UG, UNK
  11. MAGNESIUM [Concomitant]
     Dosage: 600 MG, EACH MORNING
  12. RAMIPRIL [Concomitant]
     Dosage: 2.5 MG, UNK
  13. ROSUVASTATIN [Concomitant]
     Dosage: 40 MG, UNK

REACTIONS (2)
  - INTERSTITIAL LUNG DISEASE [None]
  - PULMONARY EMBOLISM [None]
